FAERS Safety Report 19962802 (Version 2)
Quarter: 2021Q4

REPORT INFORMATION
  Report Type: Spontaneous
  Country: US (occurrence: US)
  Receive Date: 20211018
  Receipt Date: 20211126
  Transmission Date: 20220303
  Serious: No
  Sender: FDA-Public Use
  Company Number: US-PFIZER INC-202101288061

PATIENT
  Age: 20 Year
  Sex: Female
  Weight: 45.81 kg

DRUGS (1)
  1. DEPO-PROVERA [Suspect]
     Active Substance: MEDROXYPROGESTERONE ACETATE
     Indication: Contraception
     Dosage: 0.65 ML, EVERY 3 MONTHS (0.65 ML ONCE SUBCUTANEOUS INJECTION EVERY 90 DAYS)
     Route: 058

REACTIONS (2)
  - Wrong technique in device usage process [Unknown]
  - Product dose omission issue [Unknown]
